FAERS Safety Report 7086907-8 (Version None)
Quarter: 2010Q4

REPORT INFORMATION
  Report Type: 
  Country: None (occurrence: None)
  Receive Date: 20101106
  Receipt Date: 20100903
  Transmission Date: 20110411
  Serious: Yes (Hospitalization)
  Sender: FDA-Public Use
  Company Number: US-WYE-H17367010

PATIENT
  Sex: Male

DRUGS (2)
  1. RAPAMUNE [Suspect]
     Indication: RENAL TRANSPLANT
     Dosage: 1 MG (2 TABS); FREQUENCY UNSPECIFIED
     Route: 048
     Dates: end: 20100601
  2. RAPAMUNE [Suspect]
     Dosage: UNSPECIFIED
     Route: 048
     Dates: start: 20100601, end: 20100101

REACTIONS (1)
  - STOMATITIS [None]
